FAERS Safety Report 20134666 (Version 2)
Quarter: 2021Q4

REPORT INFORMATION
  Report Type: Spontaneous
  Country: US (occurrence: US)
  Receive Date: 20211201
  Receipt Date: 20211209
  Transmission Date: 20220303
  Serious: Yes (Hospitalization, Other)
  Sender: FDA-Public Use
  Company Number: US-Accord-246236

PATIENT
  Age: 34 Year
  Sex: Female

DRUGS (1)
  1. CAPECITABINE [Suspect]
     Active Substance: CAPECITABINE
     Indication: Invasive ductal breast carcinoma
     Dosage: TWICE DAILY FOR 14 DAYS OF EVERY 21 DAYS CYCLE FOR SIX CYCLES
     Route: 048

REACTIONS (1)
  - Leukoencephalopathy [Recovered/Resolved]
